FAERS Safety Report 9407753 (Version 3)
Quarter: 2013Q2

REPORT INFORMATION
  Report Type: Spontaneous
  Country: PT (occurrence: None)
  Receive Date: 20130311
  Receipt Date: 20130426
  Transmission Date: 20140414
  Serious: Yes (Hospitalization, Disabling)
  Sender: FDA-Public Use
  Company Number: 2013MPI00044

PATIENT
  Age: 48 Year
  Sex: Male
  Weight: 63 kg

DRUGS (4)
  1. BRENTUXIMAB VEDOTIN [Suspect]
     Indication: HODGKIN^S DISEASE
     Route: 042
     Dates: start: 20120824, end: 20120913
  2. OMEPRAZOLE [Concomitant]
  3. ACYCLOVIR (ACLCLOVIR) [Concomitant]
  4. PREDNISOLONE (PREDNISOLONE ACETATE) [Concomitant]

REACTIONS (5)
  - Respiratory disorder [None]
  - Dyspnoea [None]
  - Fatigue [None]
  - Cough [None]
  - Interstitial lung disease [None]
